FAERS Safety Report 5500822-X (Version None)
Quarter: 2007Q4

REPORT INFORMATION
  Report Type: 
  Country: None (occurrence: None)
  Receive Date: 20071029
  Receipt Date: 20071019
  Transmission Date: 20080405
  Serious: Yes (Other)
  Sender: FDA-Public Use
  Company Number: B0488278A

PATIENT
  Age: 37 Year
  Sex: Male

DRUGS (3)
  1. AUGMENTIN '125' [Suspect]
     Dosage: 625MG TWICE PER DAY
     Route: 048
     Dates: start: 20070910, end: 20070913
  2. AUGMENTIN '125' [Suspect]
     Indication: DRUG USE FOR UNKNOWN INDICATION
     Route: 065
     Dates: start: 20070101, end: 20070101
  3. CETIRIZINE HCL [Suspect]
     Dosage: 10MG PER DAY
     Route: 048
     Dates: start: 20070901, end: 20070901

REACTIONS (5)
  - EYELID OEDEMA [None]
  - HYPERSENSITIVITY [None]
  - RASH ERYTHEMATOUS [None]
  - RASH PRURITIC [None]
  - TACHYCARDIA [None]
